FAERS Safety Report 12308355 (Version 1)
Quarter: 2016Q2

REPORT INFORMATION
  Report Type: Other
  Country: US (occurrence: US)
  Receive Date: 20160426
  Receipt Date: 20160426
  Transmission Date: 20160815
  Serious: Yes (Other)
  Sender: FDA-Public Use
  Company Number: US-GUTHY-RENKER LLC-1051057

PATIENT
  Sex: Female

DRUGS (2)
  1. IT COSMETICS BYE BYE FOUNDATION SPF 50+ [Suspect]
     Active Substance: TITANIUM DIOXIDE\ZINC OXIDE
     Indication: PROPHYLAXIS AGAINST SOLAR RADIATION
     Route: 061
  2. HEART MEDICATIONS [Concomitant]

REACTIONS (5)
  - Ocular hyperaemia [None]
  - Pruritus [None]
  - Eye swelling [Recovered/Resolved]
  - Burning sensation [None]
  - Erythema [None]

NARRATIVE: CASE EVENT DATE: 20160212
